FAERS Safety Report 5729478-8 (Version None)
Quarter: 2008Q2

REPORT INFORMATION
  Report Type: 
  Country: None (occurrence: None)
  Receive Date: 20080506
  Receipt Date: 20080428
  Transmission Date: 20081010
  Serious: Yes (Life-Threatening)
  Sender: FDA-Public Use
  Company Number: GB-AMGEN-US277074

PATIENT
  Age: 53 Year
  Sex: Male
  Weight: 83 kg

DRUGS (2)
  1. ENBREL [Suspect]
     Indication: RHEUMATOID ARTHRITIS
     Dosage: 50MG FREQUENCY UNKNOWN
     Route: 058
     Dates: start: 20070401, end: 20071201
  2. CO-DYDRAMOL [Concomitant]
     Indication: RHEUMATOID ARTHRITIS
     Dosage: UNKNOWN
     Route: 048

REACTIONS (1)
  - ALVEOLITIS [None]
